FAERS Safety Report 9476107 (Version 2)
Quarter: 2013Q4

REPORT INFORMATION
  Report Type: Spontaneous
  Country: GB (occurrence: None)
  Receive Date: 20130821
  Receipt Date: 20131015
  Transmission Date: 20140711
  Serious: Yes (Other)
  Sender: FDA-Public Use
  Company Number: KAD201308-001021

PATIENT
  Age: 49 Year
  Sex: Male

DRUGS (3)
  1. RIBAVIRIN [Suspect]
     Indication: HEPATITIS C
     Route: 048
     Dates: start: 20121130
  2. PEGINTERFERON ALFA-2B [Suspect]
     Indication: HEPATITIS C
     Route: 058
     Dates: start: 20121130
  3. INCIVO (TELAPREVIR) [Suspect]
     Indication: HEPATITIS C
     Route: 048
     Dates: start: 20121130, end: 20130222

REACTIONS (12)
  - Anaemia [None]
  - Anorectal disorder [None]
  - Depressed mood [None]
  - Haemorrhoids [None]
  - Nausea [None]
  - Pruritus [None]
  - Rash pruritic [None]
  - Fatigue [None]
  - Anxiety [None]
  - Insomnia [None]
  - Hyperaesthesia [None]
  - Suicidal ideation [None]
